FAERS Safety Report 25293654 (Version 1)
Quarter: 2025Q2

REPORT INFORMATION
  Report Type: Spontaneous
  Country: US (occurrence: US)
  Receive Date: 20250510
  Receipt Date: 20250510
  Transmission Date: 20250716
  Serious: No
  Sender: SANOFI AVENTIS
  Company Number: US-SA-2024SA022613

PATIENT
  Age: 67 Year
  Sex: Female

DRUGS (20)
  1. DUPIXENT [Suspect]
     Active Substance: DUPILUMAB
     Dosage: 300 MG, QOW
     Route: 058
     Dates: start: 20220413
  2. REPATHA [Concomitant]
     Active Substance: EVOLOCUMAB
  3. LEVOTHYROXINE [Concomitant]
     Active Substance: LEVOTHYROXINE
  4. VALSARTAN [Concomitant]
     Active Substance: VALSARTAN
  5. ISOSORBIDE MONONITRATE [Concomitant]
     Active Substance: ISOSORBIDE MONONITRATE
  6. METHYLPREDNISOLONE [Concomitant]
     Active Substance: METHYLPREDNISOLONE
  7. REPATHA [Concomitant]
     Active Substance: EVOLOCUMAB
  8. POTASSIUM CITRATE [Concomitant]
     Active Substance: POTASSIUM CITRATE
  9. FLUCONAZOLE [Concomitant]
     Active Substance: FLUCONAZOLE
  10. ESTRADIOL [Concomitant]
     Active Substance: ESTRADIOL
  11. IPRATROPIUM [Concomitant]
     Active Substance: IPRATROPIUM
  12. VALACYCLOVIR [Concomitant]
     Active Substance: VALACYCLOVIR HYDROCHLORIDE
  13. MONTELUKAST SODIUM [Concomitant]
     Active Substance: MONTELUKAST SODIUM
  14. SHINGRIX [Concomitant]
     Active Substance: RECOMBINANT VARICELLA ZOSTER VIRUS (VZV) GLYCOPROTEIN E
  15. PREDNISONE [Concomitant]
     Active Substance: PREDNISONE
  16. AZELASTINE [Concomitant]
     Active Substance: AZELASTINE
  17. ONDANSETRON [Concomitant]
     Active Substance: ONDANSETRON
  18. BRILINTA [Concomitant]
     Active Substance: TICAGRELOR
  19. AZATHIOPRINE [Concomitant]
     Active Substance: AZATHIOPRINE
  20. ESTRADIOL [Concomitant]
     Active Substance: ESTRADIOL

REACTIONS (1)
  - Drug ineffective [Unknown]
